FAERS Safety Report 25194351 (Version 3)
Quarter: 2025Q2

REPORT INFORMATION
  Report Type: Spontaneous
  Country: US (occurrence: US)
  Receive Date: 20250414
  Receipt Date: 20250420
  Transmission Date: 20250717
  Serious: Yes (Hospitalization)
  Sender: SANOFI AVENTIS
  Company Number: US-SA-2025SA106397

PATIENT
  Age: 63 Year
  Sex: Male

DRUGS (5)
  1. DUPIXENT [Suspect]
     Active Substance: DUPILUMAB
     Indication: Immunodeficiency
     Dosage: 300 MG, QOW
     Route: 058
     Dates: start: 202003
  2. DUPIXENT [Suspect]
     Active Substance: DUPILUMAB
     Indication: Sinus polyp
  3. ENALAPRIL [Suspect]
     Active Substance: ENALAPRIL
  4. AMOXICILLIN [Suspect]
     Active Substance: AMOXICILLIN
  5. MINOXIDIL [Concomitant]
     Active Substance: MINOXIDIL

REACTIONS (7)
  - Drug hypersensitivity [Unknown]
  - Ear infection [Unknown]
  - Food allergy [Unknown]
  - Seasonal allergy [Unknown]
  - Mite allergy [Unknown]
  - Speech disorder [Unknown]
  - Product use in unapproved indication [Unknown]

NARRATIVE: CASE EVENT DATE: 20200301
